FAERS Safety Report 7371186-4 (Version None)
Quarter: 2011Q1

REPORT INFORMATION
  Report Type: 
  Country: None (occurrence: None)
  Receive Date: 20110324
  Receipt Date: 20110318
  Transmission Date: 20110831
  Serious: Yes (Death, Hospitalization, Other)
  Sender: FDA-Public Use
  Company Number: US-ASTELLAS-2011US000703

PATIENT
  Sex: Female
  Weight: 42 kg

DRUGS (26)
  1. PRILOSEC [Concomitant]
     Indication: PRODUCT USED FOR UNKNOWN INDICATION
     Dosage: 40 MG, BID
     Route: 048
  2. AMBIEN [Concomitant]
     Indication: INSOMNIA
     Dosage: 5 MG, QHS PRN
     Route: 048
  3. PROVENTIL-HFA [Concomitant]
     Indication: DYSPNOEA
     Dosage: 4 PUFFS, PRN
     Route: 055
  4. ZOFRAN [Concomitant]
     Indication: NAUSEA
     Dosage: 32 MG, DAILY PRN
     Route: 042
  5. LEXAPRO [Concomitant]
     Indication: PRODUCT USED FOR UNKNOWN INDICATION
     Dosage: 10 MG, Q M,W, F
     Route: 048
  6. ADVAIR DISKUS 100/50 [Concomitant]
     Indication: PRODUCT USED FOR UNKNOWN INDICATION
     Dosage: 1 PUFF, BID
     Route: 055
  7. BENADRYL [Concomitant]
     Indication: INSOMNIA
     Dosage: 25 MG, Q 6 HRS PRN
     Route: 048
  8. AFRIN [Concomitant]
     Indication: NASAL CONGESTION
     Dosage: 1 SPRAY, Q NOSTRIL, Q 12 HRS PRN
     Route: 045
  9. ZOFRAN [Concomitant]
     Indication: VOMITING
  10. MAALOX [Concomitant]
     Indication: DYSPEPSIA
     Dosage: 30 ML, Q 4 HRS PRN
     Route: 048
  11. BENADRYL [Concomitant]
     Indication: PRURITUS
  12. ACTIGALL [Concomitant]
     Indication: PRODUCT USED FOR UNKNOWN INDICATION
     Dosage: 300 MG, BID
     Route: 065
  13. K-DUR [Concomitant]
     Indication: PRODUCT USED FOR UNKNOWN INDICATION
     Dosage: 20 MEQ, BID
     Route: 048
  14. CLOTRIMAZOLE [Concomitant]
     Indication: PRODUCT USED FOR UNKNOWN INDICATION
     Dosage: 1 %, DAILY PRN
     Route: 067
  15. PROGRAF [Suspect]
     Indication: STEM CELL TRANSPLANT
     Dosage: 2 MG, BID
     Route: 048
     Dates: start: 20081103, end: 20100920
  16. PROGRAF [Suspect]
     Indication: GRAFT VERSUS HOST DISEASE
  17. ESTRACE [Concomitant]
     Indication: PRODUCT USED FOR UNKNOWN INDICATION
     Dosage: 1 G, UID/QD
     Route: 067
  18. XOPENEX [Concomitant]
     Indication: PULMONARY CONGESTION
     Dosage: 2 PUFFS, Q 6 HRS PRN
     Route: 055
  19. UNISOM [Concomitant]
     Indication: PRODUCT USED FOR UNKNOWN INDICATION
     Dosage: UNK
     Route: 065
  20. ZOVIRAX [Concomitant]
     Indication: PRODUCT USED FOR UNKNOWN INDICATION
     Dosage: 200 MG, UID/QD
     Route: 048
  21. DIFLUCAN [Concomitant]
     Indication: PRODUCT USED FOR UNKNOWN INDICATION
     Dosage: 100 MG, Q M,W,F
     Route: 048
  22. IMODIUM MULTI-SYMPTOM RELIEF [Concomitant]
     Indication: DIARRHOEA
     Dosage: 4 MG, PRN
     Route: 048
  23. COMPAZINE [Concomitant]
     Indication: NAUSEA
     Dosage: 10 MG, Q 6 HRS PRN IV OR PO
     Route: 065
  24. COMPAZINE [Concomitant]
     Indication: VOMITING
  25. TRIAMCINOLONE [Concomitant]
     Indication: PRODUCT USED FOR UNKNOWN INDICATION
     Dosage: 0.1 %, BID PRN
     Route: 061
  26. LIDOCAINE [Concomitant]
     Indication: URETHRAL PAIN
     Dosage: UNK
     Route: 061

REACTIONS (6)
  - OBLITERATIVE BRONCHIOLITIS [None]
  - CHOLELITHIASIS [None]
  - OFF LABEL USE [None]
  - PNEUMONIA [None]
  - UPPER RESPIRATORY TRACT INFECTION [None]
  - GRAFT VERSUS HOST DISEASE [None]
